FAERS Safety Report 5657436-0 (Version None)
Quarter: 2008Q1

REPORT INFORMATION
  Report Type: 
  Country: None (occurrence: None)
  Receive Date: 20080310
  Receipt Date: 20080227
  Transmission Date: 20080703
  Serious: Yes (Other)
  Sender: FDA-Public Use
  Company Number: BR-PFIZER INC-2008019153

PATIENT
  Sex: Male

DRUGS (2)
  1. CHANTIX [Suspect]
     Indication: TOBACCO USER
     Route: 048
     Dates: start: 20070801, end: 20080226
  2. METFORMIN HCL [Concomitant]
     Route: 048

REACTIONS (3)
  - ANXIETY [None]
  - HYPERGLYCAEMIA [None]
  - NERVOUSNESS [None]
